FAERS Safety Report 10306772 (Version 1)
Quarter: 2014Q3

REPORT INFORMATION
  Report Type: Report from Study
  Country: GB (occurrence: GB)
  Receive Date: 20140715
  Receipt Date: 20140715
  Transmission Date: 20150326
  Serious: Yes (Death)
  Sender: FDA-Public Use
  Company Number: GB-ABBVIE-14P-167-1259206-00

PATIENT
  Sex: Female
  Weight: 107 kg

DRUGS (2)
  1. METHOTREXATE [Concomitant]
     Active Substance: METHOTREXATE
     Indication: RHEUMATOID ARTHRITIS
  2. HUMIRA [Suspect]
     Active Substance: ADALIMUMAB
     Indication: RHEUMATOID ARTHRITIS
     Route: 058
     Dates: start: 20060626, end: 20080629

REACTIONS (7)
  - Osteoarthritis [Fatal]
  - Sepsis [Fatal]
  - Soft tissue infection [Fatal]
  - Osteomyelitis [Fatal]
  - Skin infection [Fatal]
  - Urinary tract infection [Fatal]
  - Diabetes mellitus [Fatal]
